FAERS Safety Report 8858642 (Version 1)
Quarter: 2012Q4

REPORT INFORMATION
  Report Type: 
  Country: US (occurrence: US)
  Receive Date: 20121024
  Receipt Date: 20121024
  Transmission Date: 20130627
  Serious: Yes (Other)
  Sender: FDA-Public Use
  Company Number: US-BAYER-2012-109507

PATIENT
  Age: 50 Year
  Sex: Female

DRUGS (5)
  1. YAZ [Suspect]
  2. BENICAR [Concomitant]
     Dosage: 20/12.5
     Route: 048
     Dates: start: 201006
  3. ZOLOFT [Concomitant]
     Dosage: 100 mg, daily
     Route: 048
  4. IMITREX [Concomitant]
  5. PROVERA [Concomitant]

REACTIONS (1)
  - Thrombophlebitis superficial [None]
